FAERS Safety Report 4455722-3 (Version None)
Quarter: 2004Q3

REPORT INFORMATION
  Report Type: 
  Country: None (occurrence: None)
  Receive Date: 20040917
  Receipt Date: 20040906
  Transmission Date: 20050211
  Serious: No
  Sender: FDA-Public Use
  Company Number: CH-2004-031362

PATIENT
  Sex: 0

DRUGS (1)
  1. ULTRAVIST 370 [Suspect]
     Indication: UROGRAPHY
     Dosage: INTRAVENOUS
     Route: 042
     Dates: start: 20040902, end: 20040902

REACTIONS (7)
  - CYANOSIS [None]
  - ERYTHEMA [None]
  - FEELING HOT [None]
  - HEADACHE [None]
  - HYPOAESTHESIA ORAL [None]
  - PERIORBITAL OEDEMA [None]
  - VOMITING [None]
